FAERS Safety Report 6264239-5 (Version None)
Quarter: 2009Q3

REPORT INFORMATION
  Report Type: 
  Country: None (occurrence: None)
  Receive Date: 20090710
  Receipt Date: 20090702
  Transmission Date: 20100115
  Serious: Yes (Other)
  Sender: FDA-Public Use
  Company Number: ZA-ABBOTT-09P-143-0576699-00

PATIENT
  Age: 55 Year
  Sex: Male

DRUGS (9)
  1. ULTANE [Suspect]
     Indication: GENERAL ANAESTHESIA
     Route: 055
     Dates: start: 20090519, end: 20090519
  2. ULTANE [Suspect]
     Indication: HAEMORRHOID OPERATION
  3. DIPRIVAN [Concomitant]
     Indication: INDUCTION OF ANAESTHESIA
     Route: 042
     Dates: start: 20090519, end: 20090519
  4. ALFENTANIL [Concomitant]
     Indication: INDUCTION OF ANAESTHESIA
     Route: 042
     Dates: start: 20090519, end: 20090519
  5. MIVACURIUM [Concomitant]
     Indication: MUSCLE RELAXANT THERAPY
     Route: 042
     Dates: start: 20090519, end: 20090519
  6. MIDAZOLAM HCL [Concomitant]
     Indication: PREMEDICATION
     Route: 048
     Dates: start: 20090519, end: 20090519
  7. GRANISETRON HCL [Concomitant]
     Indication: DRUG USE FOR UNKNOWN INDICATION
     Route: 042
     Dates: start: 20090519, end: 20090519
  8. KETOROLAC TROMETHAMINE [Concomitant]
     Indication: DRUG USE FOR UNKNOWN INDICATION
     Route: 042
     Dates: start: 20090519, end: 20090519
  9. NITROUS OXIDE [Concomitant]
     Indication: ANAESTHESIA
     Route: 055
     Dates: start: 20090519, end: 20090519

REACTIONS (1)
  - PREMATURE RECOVERY FROM ANAESTHESIA [None]
